FAERS Safety Report 7985091-3 (Version None)
Quarter: 2011Q4

REPORT INFORMATION
  Report Type: 
  Country: None (occurrence: None)
  Receive Date: 20111216
  Receipt Date: 20111212
  Transmission Date: 20120403
  Serious: Yes (Death)
  Sender: FDA-Public Use
  Company Number: PHHY2011CA108683

PATIENT
  Sex: Male

DRUGS (1)
  1. SANDOSTATIN LAR [Suspect]
     Indication: COLON CANCER
     Dosage: 30 MG, QMO
     Route: 030
     Dates: start: 20110303

REACTIONS (1)
  - DEATH [None]
